FAERS Safety Report 7289991-1 (Version None)
Quarter: 2011Q1

REPORT INFORMATION
  Report Type: 
  Country: None (occurrence: None)
  Receive Date: 20110209
  Receipt Date: 20110209
  Transmission Date: 20110831
  Serious: Yes (Other)
  Sender: FDA-Public Use
  Company Number: None

PATIENT
  Age: 64 Year
  Sex: Male
  Weight: 84.1 kg

DRUGS (1)
  1. LEVULAN [Suspect]
     Indication: ACTINIC KERATOSIS
     Dosage: 1 TOPICAL
     Route: 061
     Dates: start: 20110110

REACTIONS (4)
  - MEDICATION ERROR [None]
  - CHEMICAL INJURY [None]
  - RADIATION SKIN INJURY [None]
  - SKIN EXFOLIATION [None]
